FAERS Safety Report 15113773 (Version 2)
Quarter: 2019Q2

REPORT INFORMATION
  Report Type: Spontaneous
  Country: US (occurrence: US)
  Receive Date: 20180706
  Receipt Date: 20190603
  Transmission Date: 20190711
  Serious: No
  Sender: FDA-Public Use
  Company Number: US-PFIZER INC-2018270811

PATIENT
  Age: 71 Year
  Sex: Female

DRUGS (1)
  1. SINEQUAN [Suspect]
     Active Substance: DOXEPIN HYDROCHLORIDE
     Indication: DEPRESSION
     Dosage: UNK
     Dates: start: 197406

REACTIONS (1)
  - Drug ineffective [Unknown]

NARRATIVE: CASE EVENT DATE: 1976
